FAERS Safety Report 9241531 (Version 3)
Quarter: 2013Q2

REPORT INFORMATION
  Report Type: Spontaneous
  Country: FR (occurrence: FR)
  Receive Date: 20130419
  Receipt Date: 20130513
  Transmission Date: 20140414
  Serious: Yes (Disabling, Other)
  Sender: FDA-Public Use
  Company Number: FR-PFIZER INC-2013120176

PATIENT
  Age: 65 Year
  Sex: Female

DRUGS (3)
  1. LYRICA [Suspect]
     Dosage: UNK
     Route: 048
     Dates: start: 20121108, end: 20121220
  2. METFORMIN HCL [Suspect]
     Dosage: 850 MG, 2X/DAY
     Route: 048
     Dates: start: 20121107, end: 20130124
  3. STAGID [Suspect]
     Indication: TYPE 2 DIABETES MELLITUS
     Dosage: 700 MG, 3X/DAY
     Route: 048
     Dates: start: 20130124

REACTIONS (4)
  - Anosmia [Not Recovered/Not Resolved]
  - Deafness [Not Recovered/Not Resolved]
  - Head injury [Unknown]
  - Nausea [Not Recovered/Not Resolved]
